FAERS Safety Report 9131475 (Version 1)
Quarter: 2013Q1

REPORT INFORMATION
  Report Type: Report from Study
  Country: US (occurrence: US)
  Receive Date: 20130301
  Receipt Date: 20130301
  Transmission Date: 20140127
  Serious: Yes (Other)
  Sender: FDA-Public Use
  Company Number: US-MYLANLABS-2012S1006159

PATIENT
  Age: 15 Year
  Sex: Female
  Weight: 67.13 kg

DRUGS (2)
  1. AMNESTEEM CAPSULES [Suspect]
     Indication: ACNE CYSTIC
     Route: 048
     Dates: end: 20120202
  2. CLARAVIS [Suspect]
     Indication: ACNE CYSTIC
     Dates: start: 20111121

REACTIONS (1)
  - Benign intracranial hypertension [Recovered/Resolved]
